FAERS Safety Report 11431526 (Version 1)
Quarter: 2015Q3

REPORT INFORMATION
  Report Type: Spontaneous
  Country: US (occurrence: US)
  Receive Date: 20150828
  Receipt Date: 20150828
  Transmission Date: 20151125
  Serious: Yes (Other)
  Sender: FDA-Public Use
  Company Number: US-PFIZER INC-2015287112

PATIENT
  Age: 84 Year
  Sex: Female
  Weight: 49 kg

DRUGS (10)
  1. ATENOLOL. [Suspect]
     Active Substance: ATENOLOL
     Indication: HYPERTENSION
     Dosage: 25 MG, 1X/DAY
     Route: 065
  2. FLAXSEED [Concomitant]
     Active Substance: FLAX SEED
     Dosage: 2 DF, 1X/DAY
  3. ATENOLOL. [Suspect]
     Active Substance: ATENOLOL
     Dosage: 50 MG, DAILY
     Route: 065
     Dates: start: 2001
  4. BRILINTA [Suspect]
     Active Substance: TICAGRELOR
     Indication: STENT PLACEMENT
     Dosage: 90 MG, 2X/DAY
     Route: 048
     Dates: start: 20150720
  5. OMEGA 3 [Concomitant]
     Active Substance: OMEGA-3 FATTY ACIDS
     Dosage: 2 DF, 1X/DAY
  6. FLAXSEED [Concomitant]
     Active Substance: FLAX SEED
     Dosage: 3 DF, 1X/DAY
  7. FLAXSEED [Concomitant]
     Active Substance: FLAX SEED
     Dosage: 1 DF, 1X/DAY
  8. OMEGA 3 [Concomitant]
     Active Substance: OMEGA-3 FATTY ACIDS
     Dosage: 3 DF, 1X/DAY
  9. CALCIUM WITH VITAMIN D3 [Concomitant]
     Active Substance: CALCIUM CARBONATE\CHOLECALCIFEROL
     Indication: SUPPLEMENTATION THERAPY
     Dosage: 800 IU, 1X/DAY
  10. OMEGA 3 [Concomitant]
     Active Substance: OMEGA-3 FATTY ACIDS
     Dosage: 1 DF, 1X/DAY

REACTIONS (9)
  - Myalgia [Unknown]
  - Fatigue [Unknown]
  - Somnolence [Unknown]
  - Carotid artery occlusion [Unknown]
  - Decreased appetite [Unknown]
  - Dry eye [Unknown]
  - Pain in extremity [Unknown]
  - Tremor [Unknown]
  - Contusion [Unknown]
